FAERS Safety Report 12531408 (Version 1)
Quarter: 2016Q3

REPORT INFORMATION
  Report Type: Report from Study
  Country: US (occurrence: US)
  Receive Date: 20160706
  Receipt Date: 20160706
  Transmission Date: 20161109
  Serious: Yes (Other)
  Sender: FDA-Public Use
  Company Number: US-MALLINCKRODT-T201504678

PATIENT
  Age: 1 Year
  Sex: Female

DRUGS (1)
  1. OXYCODONE [Suspect]
     Active Substance: OXYCODONE
     Indication: PRODUCT USED FOR UNKNOWN INDICATION
     Dosage: 15 MG
     Route: 065

REACTIONS (5)
  - Accidental exposure to product by child [Unknown]
  - Accidental overdose [Unknown]
  - Somnolence [Unknown]
  - Respiratory rate decreased [Unknown]
  - Pallor [Unknown]

NARRATIVE: CASE EVENT DATE: 20101015
